FAERS Safety Report 24369356 (Version 1)
Quarter: 2024Q3

REPORT INFORMATION
  Report Type: Report from Study
  Country: US (occurrence: US)
  Receive Date: 20240927
  Receipt Date: 20240927
  Transmission Date: 20241017
  Serious: No
  Sender: ROCHE
  Company Number: US-ROCHE-3342010

PATIENT
  Age: 80 Year
  Sex: Female

DRUGS (6)
  1. LUCENTIS [Suspect]
     Active Substance: RANIBIZUMAB
     Indication: Neovascular age-related macular degeneration
     Dosage: INJECT 0.5MG INTO LEFT EYE VIA INTRAVITREAL ADMINISTRATION EVERY 28 DAY(S)
     Route: 050
  2. LUCENTIS [Suspect]
     Active Substance: RANIBIZUMAB
     Indication: Choroidal neovascularisation
  3. LUCENTIS [Suspect]
     Active Substance: RANIBIZUMAB
     Indication: Neovascular age-related macular degeneration
  4. VABYSMO [Suspect]
     Active Substance: FARICIMAB-SVOA
     Indication: Choroidal neovascularisation
     Dosage: INJECT 0.5MG INTO LEFT EYE VIA INTRAVITREAL ADMINISTRATION EVERY 28 DAY(S), STRENGTH: 6MG/0.05ML, QU
     Route: 050
  5. VABYSMO [Suspect]
     Active Substance: FARICIMAB-SVOA
     Indication: Neovascular age-related macular degeneration
  6. VABYSMO [Suspect]
     Active Substance: FARICIMAB-SVOA
     Indication: Neovascular age-related macular degeneration

REACTIONS (2)
  - Inappropriate schedule of product administration [Unknown]
  - No adverse event [Unknown]
